FAERS Safety Report 24318987 (Version 1)
Quarter: 2024Q3

REPORT INFORMATION
  Report Type: Spontaneous
  Country: GB (occurrence: GB)
  Receive Date: 20240913
  Receipt Date: 20240913
  Transmission Date: 20241017
  Serious: Yes (Other)
  Sender: TEVA
  Company Number: None

PATIENT
  Age: 84 Year

DRUGS (12)
  1. TRIMETHOPRIM [Suspect]
     Active Substance: TRIMETHOPRIM
     Dosage: AT NIGHT - HELD, HYPONATREMIA, ASSESS IS NA IMPROVES,
     Route: 065
  2. OXCARBAZEPINE [Concomitant]
     Active Substance: OXCARBAZEPINE
  3. SIMVASTATIN [Concomitant]
     Active Substance: SIMVASTATIN
     Dosage: AT NIGHT,
  4. Cortiment [Concomitant]
     Dosage: EACH MORNING,
  5. ACETAMINOPHEN [Concomitant]
     Active Substance: ACETAMINOPHEN
     Dosage: EVERY 4-6 HOURS UP TO FOUR TIMES A DAY 100 TABLET - PRN
  6. FOLIC ACID [Concomitant]
     Active Substance: FOLIC ACID
  7. CHOLECALCIFEROL [Concomitant]
     Active Substance: CHOLECALCIFEROL
  8. SODIUM CHLORIDE [Concomitant]
     Active Substance: SODIUM CHLORIDE
     Dosage: 14 TABLET -DIDNT START CAME TO HOSPITAL
  9. NITROFURANTOIN [Concomitant]
     Active Substance: NITROFURANTOIN
     Dosage: MODIFIED-RELEASE CAPSULES,  14 CAPSULE - COMPLETED,
  10. CALCIUM CARBONATE\CHOLECALCIFEROL [Concomitant]
     Active Substance: CALCIUM CARBONATE\CHOLECALCIFEROL
     Dosage: ADCAL-D3 750 MG / 200 UNIT CAPLETS
  11. CANDESARTAN [Concomitant]
     Active Substance: CANDESARTAN
     Dosage: TDD 12 MG - HELD HYPONATRAEMIA,
  12. CANDESARTAN [Concomitant]
     Active Substance: CANDESARTAN
     Dosage: HELD HYPONATRAEMIA,

REACTIONS (1)
  - Inappropriate antidiuretic hormone secretion [Unknown]
